FAERS Safety Report 10519803 (Version 2)
Quarter: 2014Q4

REPORT INFORMATION
  Report Type: Spontaneous
  Country: FR (occurrence: FR)
  Receive Date: 20141015
  Receipt Date: 20141128
  Transmission Date: 20150528
  Serious: Yes (Hospitalization)
  Sender: FDA-Public Use
  Company Number: FR-ASTRAZENECA-2014SE76023

PATIENT
  Age: 15441 Day
  Sex: Female

DRUGS (7)
  1. VERATRAN [Suspect]
     Active Substance: CLOTIAZEPAM
     Route: 048
     Dates: start: 20140814, end: 20140908
  2. ZOMIG [Suspect]
     Active Substance: ZOLMITRIPTAN
     Dosage: PUNCTUAL
     Route: 048
     Dates: start: 20140713, end: 20140908
  3. DECONTRACTYL [Suspect]
     Active Substance: MEPHENESIN
     Route: 048
     Dates: start: 20140713, end: 20140908
  4. DAFALGAN [Suspect]
     Active Substance: ACETAMINOPHEN
     Dosage: 4 TO 6 DF DAILY
     Route: 048
     Dates: start: 20140713, end: 20140908
  5. PROZAC [Suspect]
     Active Substance: FLUOXETINE HYDROCHLORIDE
     Route: 048
     Dates: start: 20140814, end: 20140908
  6. AVLOCARDYL [Suspect]
     Active Substance: PROPRANOLOL HYDROCHLORIDE
     Route: 048
     Dates: start: 20140814, end: 20140908
  7. ZOLPIDEM [Suspect]
     Active Substance: ZOLPIDEM\ZOLPIDEM TARTRATE
     Route: 048
     Dates: start: 20140814, end: 20140908

REACTIONS (1)
  - Hepatitis [Recovering/Resolving]

NARRATIVE: CASE EVENT DATE: 20140908
